FAERS Safety Report 14367864 (Version 3)
Quarter: 2018Q1

REPORT INFORMATION
  Report Type: Spontaneous
  Country: IN (occurrence: IN)
  Receive Date: 20180109
  Receipt Date: 20180221
  Transmission Date: 20180509
  Serious: Yes (Other)
  Sender: FDA-Public Use
  Company Number: IN-LPDUSPRD-20171776

PATIENT
  Age: 59 Year
  Sex: Male
  Weight: 74 kg

DRUGS (2)
  1. FERINJECT [Suspect]
     Active Substance: FERRIC CARBOXYMALTOSE
     Dosage: 500 MG
     Route: 042
  2. ENCICARB [Concomitant]
     Dosage: 500 MG/100 ML NS(1 TO 1)
     Route: 042

REACTIONS (1)
  - Type IV hypersensitivity reaction [Unknown]

NARRATIVE: CASE EVENT DATE: 2016
